FAERS Safety Report 19044049 (Version 1)
Quarter: 2021Q1

REPORT INFORMATION
  Report Type: Spontaneous
  Country: US (occurrence: US)
  Receive Date: 20210323
  Receipt Date: 20210323
  Transmission Date: 20210420
  Serious: No
  Sender: FDA-Public Use
  Company Number: None

PATIENT
  Age: 34 Year
  Sex: Male
  Weight: 70 kg

DRUGS (1)
  1. TRAZODONE (TRAZODONE HCL 50MG TAB) [Suspect]
     Active Substance: TRAZODONE HYDROCHLORIDE
     Dosage: ?          OTHER FREQUENCY:AT BEDTIME;?
     Route: 048
     Dates: start: 20200125, end: 20210223

REACTIONS (1)
  - Priapism [None]

NARRATIVE: CASE EVENT DATE: 20210223
